FAERS Safety Report 25774928 (Version 1)
Quarter: 2025Q3

REPORT INFORMATION
  Report Type: Spontaneous
  Country: TN (occurrence: TN)
  Receive Date: 20250908
  Receipt Date: 20250908
  Transmission Date: 20251021
  Serious: Yes (Other)
  Sender: GALPHARM INTERNATIONAL
  Company Number: TN-MLMSERVICE-20250820-PI616299-00031-1

PATIENT
  Age: 56 Year
  Sex: Male

DRUGS (1)
  1. OMEPRAZOLE MAGNESIUM [Suspect]
     Active Substance: OMEPRAZOLE MAGNESIUM
     Indication: Product used for unknown indication
     Dosage: 40 MG, QD
     Route: 048

REACTIONS (1)
  - Type I hypersensitivity [Recovered/Resolved]
